FAERS Safety Report 8687826 (Version 3)
Quarter: 2012Q4

REPORT INFORMATION
  Report Type: Report from Study
  Country: DE (occurrence: DE)
  Receive Date: 20120727
  Receipt Date: 20120924
  Transmission Date: 20130627
  Serious: Yes (Hospitalization)
  Sender: FDA-Public Use
  Company Number: DE-TEVA-349329GER

PATIENT
  Age: 52 Year
  Sex: Female

DRUGS (5)
  1. MYOCET [Suspect]
     Indication: BREAST CANCER
     Route: 042
     Dates: start: 20120305
  2. CARBOPLATIN [Suspect]
     Indication: BREAST CANCER
     Route: 042
     Dates: start: 20120305
  3. TAXOL [Suspect]
     Indication: BREAST CANCER
     Route: 042
     Dates: start: 20120305
  4. HERCEPTIN [Suspect]
     Indication: BREAST CANCER
     Route: 042
     Dates: start: 20120305
  5. LAPATINIB [Suspect]
     Indication: BREAST CANCER
     Dosage: 750 Milligram Daily;
     Route: 048
     Dates: start: 20120305

REACTIONS (3)
  - Gastritis [Recovered/Resolved]
  - Gastrooesophageal reflux disease [Unknown]
  - Hiatus hernia [Unknown]
